FAERS Safety Report 17983487 (Version 2)
Quarter: 2020Q3

REPORT INFORMATION
  Report Type: Spontaneous
  Country: SE (occurrence: SE)
  Receive Date: 20200706
  Receipt Date: 20200709
  Transmission Date: 20201103
  Serious: Yes (Life-Threatening)
  Sender: FDA-Public Use
  Company Number: SE-MYLANLABS-2020M1061278

PATIENT
  Age: 46 Year
  Sex: Female
  Weight: 60 kg

DRUGS (4)
  1. MAGNESIUM [Concomitant]
     Active Substance: MAGNESIUM
     Dosage: UNK
  2. DYMISTA [Suspect]
     Active Substance: AZELASTINE HYDROCHLORIDE\FLUTICASONE PROPIONATE
     Indication: HYPERSENSITIVITY
     Dosage: 2 DOSAGE FORM, QD (MORNING AND EVENING, BOTH NOSTRILS)
     Route: 045
     Dates: start: 20191118, end: 20200202
  3. ZINK                               /00156501/ [Concomitant]
     Dosage: UNK
     Dates: start: 201906, end: 202001
  4. DESLORATADIN [Concomitant]
     Active Substance: DESLORATADINE
     Dosage: UNK
     Dates: start: 2014

REACTIONS (4)
  - Depression [Recovered/Resolved]
  - Major depression [Recovered/Resolved]
  - Vision blurred [Recovered/Resolved]
  - Menstruation irregular [Recovered/Resolved]

NARRATIVE: CASE EVENT DATE: 201912
